FAERS Safety Report 4957627-8 (Version None)
Quarter: 2006Q1

REPORT INFORMATION
  Report Type: 
  Country: None (occurrence: None)
  Receive Date: 20060330
  Receipt Date: 20060317
  Transmission Date: 20060701
  Serious: Yes (Other)
  Sender: FDA-Public Use
  Company Number: GB-SANOFI-SYNTHELABO-F01200600803

PATIENT
  Sex: Male

DRUGS (5)
  1. OXALIPLATIN [Suspect]
     Indication: COLON CANCER
     Route: 042
  2. FLUOROURACIL [Suspect]
     Route: 042
  3. LEUCOVORIN [Suspect]
     Route: 042
  4. AMOXICILLIN [Concomitant]
     Dates: start: 20060210, end: 20060217
  5. ERYTHROMYCIN [Concomitant]
     Dates: start: 20060215, end: 20060222

REACTIONS (1)
  - BLOOD LACTATE DEHYDROGENASE INCREASED [None]
